FAERS Safety Report 21480997 (Version 5)
Quarter: 2023Q1

REPORT INFORMATION
  Report Type: Report from Study
  Country: US (occurrence: US)
  Receive Date: 20221019
  Receipt Date: 20230221
  Transmission Date: 20230417
  Serious: Yes (Death, Hospitalization, Other)
  Sender: FDA-Public Use
  Company Number: US-HORIZON THERAPEUTICS-HZN-2021-003417

PATIENT

DRUGS (7)
  1. PROCYSBI [Suspect]
     Active Substance: CYSTEAMINE BITARTRATE
     Indication: Amino acid metabolism disorder
     Dosage: 975 MG, BID
     Route: 048
  2. PROCYSBI [Suspect]
     Active Substance: CYSTEAMINE BITARTRATE
     Indication: Cystinosis
     Dosage: 975 MG, BID
     Route: 048
     Dates: start: 20131022
  3. PROCYSBI [Suspect]
     Active Substance: CYSTEAMINE BITARTRATE
     Dosage: 975 MG, BID
     Route: 048
  4. PROCYSBI [Suspect]
     Active Substance: CYSTEAMINE BITARTRATE
     Dosage: 13 CAPSULES (975 MG) ORAL, EVERY 12 HOURS
     Route: 048
  5. PROCYSBI [Suspect]
     Active Substance: CYSTEAMINE BITARTRATE
     Dosage: UNK
     Route: 048
     Dates: start: 20210517
  6. PROCYSBI [Suspect]
     Active Substance: CYSTEAMINE BITARTRATE
     Dosage: 780 FOR 30 DAYS
     Route: 048
  7. PROCYSBI [Suspect]
     Active Substance: CYSTEAMINE BITARTRATE
     Dosage: TAKE 13 CAPSULES 975 MG ORALLY EVERY 12 HOURS.
     Route: 048

REACTIONS (11)
  - Dysphagia [Unknown]
  - Nausea [Unknown]
  - Death [Fatal]
  - Fluid retention [Unknown]
  - Dyspnoea [Unknown]
  - Illness [Unknown]
  - Intra-abdominal fluid collection [Not Recovered/Not Resolved]
  - Malaise [Unknown]
  - Treatment noncompliance [Unknown]
  - Product dose omission issue [Unknown]
  - Expired product administered [Unknown]

NARRATIVE: CASE EVENT DATE: 20220101
